FAERS Safety Report 11216630 (Version 1)
Quarter: 2015Q2

REPORT INFORMATION
  Report Type: Spontaneous
  Country: US (occurrence: US)
  Receive Date: 20150624
  Receipt Date: 20150624
  Transmission Date: 20150821
  Serious: No
  Sender: FDA-Public Use
  Company Number: US-MYLANLABS-2014M1005001

PATIENT
  Sex: Male

DRUGS (1)
  1. OMEPRAZOLE DELAYED-RELEASE [Suspect]
     Active Substance: OMEPRAZOLE
     Dosage: 20 MG, ONCE
     Route: 048
     Dates: start: 201409, end: 201409

REACTIONS (1)
  - Oesophageal discomfort [Recovered/Resolved]

NARRATIVE: CASE EVENT DATE: 201409
